FAERS Safety Report 14190651 (Version 3)
Quarter: 2018Q2

REPORT INFORMATION
  Report Type: Spontaneous
  Country: IT (occurrence: IT)
  Receive Date: 20171115
  Receipt Date: 20180413
  Transmission Date: 20180711
  Serious: Yes (Other)
  Sender: FDA-Public Use
  Company Number: IT-PFIZER INC-2017485793

PATIENT
  Age: 36 Year
  Sex: Female

DRUGS (3)
  1. SIRDALUD [Suspect]
     Active Substance: TIZANIDINE
     Dosage: 10 DF, WEEKLY
     Route: 048
     Dates: start: 20170927, end: 20170927
  2. XANAX [Suspect]
     Active Substance: ALPRAZOLAM
     Dosage: 18 DF, TOTAL
     Route: 048
     Dates: start: 20170927, end: 20170927
  3. AULIN [Suspect]
     Active Substance: NIMESULIDE
     Dosage: 1 DF, TOTAL
     Route: 048
     Dates: start: 20170927, end: 20170927

REACTIONS (3)
  - Drug abuse [Recovering/Resolving]
  - Depression [Recovering/Resolving]
  - Toxicity to various agents [Recovering/Resolving]

NARRATIVE: CASE EVENT DATE: 20170927
